FAERS Safety Report 5953443-9 (Version None)
Quarter: 2008Q4

REPORT INFORMATION
  Report Type: 
  Country: None (occurrence: None)
  Receive Date: 20081114
  Receipt Date: 20081105
  Transmission Date: 20090506
  Serious: Yes (Death, Life-Threatening, Hospitalization)
  Sender: FDA-Public Use
  Company Number: JP-JNJFOC-20080902943

PATIENT
  Sex: Female
  Weight: 57 kg

DRUGS (54)
  1. REMICADE [Suspect]
     Dosage: TOTAL OF 19 INFUSIONS ADMINISTERED
     Route: 042
  2. REMICADE [Suspect]
     Route: 042
  3. REMICADE [Suspect]
     Route: 042
  4. REMICADE [Suspect]
     Route: 042
  5. REMICADE [Suspect]
     Route: 042
  6. REMICADE [Suspect]
     Route: 042
  7. REMICADE [Suspect]
     Route: 042
  8. REMICADE [Suspect]
     Route: 042
  9. REMICADE [Suspect]
     Route: 042
  10. REMICADE [Suspect]
     Route: 042
  11. REMICADE [Suspect]
     Route: 042
  12. REMICADE [Suspect]
     Route: 042
  13. REMICADE [Suspect]
     Route: 042
  14. REMICADE [Suspect]
     Route: 042
  15. REMICADE [Suspect]
     Route: 042
  16. REMICADE [Suspect]
     Route: 042
  17. REMICADE [Suspect]
     Route: 042
  18. REMICADE [Suspect]
     Route: 042
  19. REMICADE [Suspect]
     Indication: RHEUMATOID ARTHRITIS
     Route: 042
  20. RHEUMATREX [Suspect]
     Route: 048
  21. RHEUMATREX [Suspect]
     Route: 048
  22. RHEUMATREX [Suspect]
     Indication: RHEUMATOID ARTHRITIS
     Route: 048
  23. EUGLUCON [Concomitant]
     Route: 048
  24. EUGLUCON [Concomitant]
     Route: 048
  25. EUGLUCON [Concomitant]
     Route: 048
  26. EUGLUCON [Concomitant]
     Indication: DIABETES MELLITUS
     Dosage: 1.25MG TO 7.5MG
     Route: 048
  27. FOLIAMIN [Concomitant]
     Indication: RHEUMATOID ARTHRITIS
     Route: 048
  28. PREDONINE [Concomitant]
     Indication: RHEUMATOID ARTHRITIS
     Route: 048
  29. COTRIM [Concomitant]
     Indication: INFECTION PROPHYLAXIS
     Route: 048
  30. INNOLET R [Concomitant]
     Dosage: 48 UNITS DAILY
     Route: 058
  31. INNOLET R [Concomitant]
     Dosage: 54 UNITS DAILY
     Route: 058
  32. INNOLET R [Concomitant]
     Dosage: 50 UNITS DAILY
     Route: 058
  33. INNOLET R [Concomitant]
     Dosage: 52 UNITS DAILY
     Route: 058
  34. INNOLET R [Concomitant]
     Dosage: 54 UNITS DAILY
     Route: 058
  35. INNOLET R [Concomitant]
     Dosage: 48 UNITS DAILY
     Route: 058
  36. INNOLET R [Concomitant]
     Dosage: 36 UNITS DAILY
     Route: 058
  37. INNOLET R [Concomitant]
     Dosage: 56 UNITS DAILY
     Route: 058
  38. INNOLET R [Concomitant]
     Dosage: 52 UNITS DAILY
     Route: 058
  39. INNOLET R [Concomitant]
     Dosage: 46 UNITS DAILY
     Route: 058
  40. INNOLET R [Concomitant]
     Indication: DIABETES MELLITUS
     Dosage: 44 UNITS DAILY
     Route: 058
  41. ISCOTIN [Concomitant]
     Indication: ANTIBIOTIC PROPHYLAXIS
     Route: 048
  42. DICLOFENAC SODIUM [Concomitant]
     Indication: RHEUMATOID ARTHRITIS
     Dosage: DOSE: ^75RL^
     Route: 048
  43. RABEPRAZOLE SODIUM [Concomitant]
     Route: 048
  44. ALFAROL [Concomitant]
     Indication: OSTEOPOROSIS PROPHYLAXIS
     Dosage: DOSE: ^1RG^
     Route: 048
  45. LASIX [Concomitant]
     Indication: HYPERTENSION
     Route: 048
  46. NORVASC [Concomitant]
     Indication: HYPERTENSION
     Route: 048
  47. ZANTAC [Concomitant]
     Indication: GASTROINTESTINAL DISORDER THERAPY
     Route: 048
  48. HALCION [Concomitant]
     Indication: INSOMNIA
     Route: 048
  49. ADRENAL HORMONE PREPARATIONS [Concomitant]
     Indication: RHEUMATOID ARTHRITIS
     Route: 065
  50. INNOLET N [Concomitant]
     Dosage: 10 UNITS DAILY
     Route: 058
  51. INNOLET N [Concomitant]
     Dosage: 6 UNITS DAILY
     Route: 058
  52. INNOLET N [Concomitant]
     Indication: DIABETES MELLITUS
     Dosage: 4 UNITS DAILY
     Route: 058
  53. PURSENNID [Concomitant]
     Indication: CONSTIPATION
     Route: 048
  54. LIVALO [Concomitant]
     Indication: HYPERLIPIDAEMIA
     Route: 048

REACTIONS (4)
  - CARDIAC FAILURE CONGESTIVE [None]
  - LYMPHOMA [None]
  - PNEUMONIA [None]
  - SKIN BACTERIAL INFECTION [None]
